FAERS Safety Report 4760056-3 (Version None)
Quarter: 2005Q3

REPORT INFORMATION
  Report Type: 
  Country: None (occurrence: None)
  Receive Date: 20050902
  Receipt Date: 20050825
  Transmission Date: 20060218
  Serious: Yes (Other)
  Sender: FDA-Public Use
  Company Number: US-JNJFOC-20050701276

PATIENT

DRUGS (4)
  1. REMICADE [Suspect]
     Indication: DRUG USE FOR UNKNOWN INDICATION
  2. BACTRIM [Interacting]
  3. BACTRIM [Interacting]
     Indication: DRUG USE FOR UNKNOWN INDICATION
  4. METHOTREXATE [Interacting]
     Indication: DRUG USE FOR UNKNOWN INDICATION

REACTIONS (9)
  - APHONIA [None]
  - CELLULITIS [None]
  - DRUG INTERACTION [None]
  - DYSPHAGIA [None]
  - EMOTIONAL DISORDER [None]
  - IMPAIRED HEALING [None]
  - INSOMNIA [None]
  - MORTON'S NEUROMA [None]
  - PHARYNGOLARYNGEAL PAIN [None]
